FAERS Safety Report 4585497-9 (Version None)
Quarter: 2005Q1

REPORT INFORMATION
  Report Type: 
  Country: None (occurrence: None)
  Receive Date: 20050214
  Receipt Date: 20030915
  Transmission Date: 20050727
  Serious: Yes (Hospitalization, Congenital Anomaly)
  Sender: FDA-Public Use
  Company Number: GXKR2003IN00595

PATIENT
  Age: 1 Day
  Sex: Male
  Weight: 2.1 kg

DRUGS (1)
  1. ENALAPRIL MALEATE [Suspect]
     Indication: PREGNANCY INDUCED HYPERTENSION
     Dosage: TRANSPLACENTAL
     Route: 064

REACTIONS (10)
  - ANGIOTENSIN CONVERTING ENZYME INHIBITOR FOETOPATHY [None]
  - DRUG EXPOSURE DURING PREGNANCY [None]
  - NEONATAL ANURIA [None]
  - NEONATAL DISORDER [None]
  - OLIGOHYDRAMNIOS [None]
  - PERITONEAL DIALYSIS [None]
  - PREMATURE BABY [None]
  - RENAL TUBULAR DISORDER [None]
  - SKULL MALFORMATION [None]
  - TALIPES [None]
